FAERS Safety Report 21521059 (Version 2)
Quarter: 2022Q4

REPORT INFORMATION
  Report Type: Report from Study
  Country: US (occurrence: US)
  Receive Date: 20221028
  Receipt Date: 20221101
  Transmission Date: 20230113
  Serious: No
  Sender: FDA-Public Use
  Company Number: US-ABBVIE-4167459

PATIENT
  Sex: Male

DRUGS (2)
  1. IMBRUVICA [Suspect]
     Active Substance: IBRUTINIB
     Indication: Waldenstrom^s macroglobulinaemia
     Route: 048
     Dates: start: 201508
  2. IMBRUVICA [Suspect]
     Active Substance: IBRUTINIB
     Indication: Waldenstrom^s macroglobulinaemia
     Route: 048
     Dates: start: 20150813, end: 201508

REACTIONS (6)
  - Paranasal sinus hypersecretion [Unknown]
  - Depressed mood [Unknown]
  - Fatigue [Unknown]
  - Asthenia [Unknown]
  - Skin fissures [Unknown]
  - Hypersomnia [Unknown]
